FAERS Safety Report 6230228-X (Version None)
Quarter: 2009Q2

REPORT INFORMATION
  Report Type: 
  Country: None (occurrence: None)
  Receive Date: 20090615
  Receipt Date: 20090603
  Transmission Date: 20091009
  Serious: Yes (Other)
  Sender: FDA-Public Use
  Company Number: US-PFIZER INC-2009223431

PATIENT
  Sex: Female
  Weight: 58.513 kg

DRUGS (12)
  1. CHANTIX [Suspect]
     Indication: SMOKING CESSATION THERAPY
     Dosage: UNK
  2. LAMICTAL [Concomitant]
     Dosage: UNK
  3. GEODON [Concomitant]
     Dosage: UNK
  4. CYMBALTA [Concomitant]
     Dosage: UNK
  5. KLONOPIN [Concomitant]
     Dosage: UNK
  6. PROVIGIL [Concomitant]
     Dosage: UNK
  7. ADDERALL 10 [Concomitant]
     Dosage: UNK
  8. COZAAR [Concomitant]
     Dosage: UNK
  9. ATENOLOL [Concomitant]
     Dosage: UNK
  10. HYDROCHLOROTHIAZIDE [Concomitant]
     Dosage: UNK
  11. HYDROCODONE BITARTRATE [Concomitant]
     Dosage: UNK
  12. FLEXERIL [Concomitant]
     Dosage: UNK

REACTIONS (3)
  - DYSPNOEA [None]
  - MANIA [None]
  - THROAT TIGHTNESS [None]
